FAERS Safety Report 7183344-2 (Version None)
Quarter: 2010Q4

REPORT INFORMATION
  Report Type: 
  Country: None (occurrence: None)
  Receive Date: 20101222
  Receipt Date: 20101108
  Transmission Date: 20110411
  Serious: No
  Sender: FDA-Public Use
  Company Number: US-MYLANLABS-2010S1020669

PATIENT
  Age: 72 Year
  Sex: Female

DRUGS (8)
  1. NIFEDIPINE [Suspect]
     Indication: BLOOD PRESSURE INCREASED
     Route: 048
     Dates: start: 20101001, end: 20101108
  2. LEVOTHYROXINE [Concomitant]
  3. HYDRALAZINE [Concomitant]
  4. SIMVASTATIN [Concomitant]
  5. COLCHICINE [Concomitant]
  6. TORSEMIDE [Concomitant]
  7. OMEPRAZOLE [Concomitant]
  8. CLONIDINE [Concomitant]

REACTIONS (6)
  - ASTHENIA [None]
  - DYSPNOEA [None]
  - NAUSEA [None]
  - PALPITATIONS [None]
  - PULSE PRESSURE INCREASED [None]
  - SENSATION OF HEAVINESS [None]
